FAERS Safety Report 18207406 (Version 2)
Quarter: 2020Q3

REPORT INFORMATION
  Report Type: Spontaneous
  Country: JP (occurrence: JP)
  Receive Date: 20200828
  Receipt Date: 20200925
  Transmission Date: 20201103
  Serious: Yes (Other)
  Sender: FDA-Public Use
  Company Number: JP-SUNOVION-2020DSP008481

PATIENT
  Age: 58 Year
  Sex: Male
  Weight: 72 kg

DRUGS (14)
  1. NIFEDIPINE. [Concomitant]
     Active Substance: NIFEDIPINE
     Dosage: 40 MG, QD
     Route: 048
  2. POLAPREZINC [Concomitant]
     Active Substance: POLAPREZINC
     Dosage: 75 MG, BID
     Route: 048
  3. LIMAPROST ALFADEX [Concomitant]
     Active Substance: LIMAPROST
     Dosage: 10 ?G, TID
     Route: 048
  4. TAKECAB [Concomitant]
     Active Substance: VONOPRAZAN FUMARATE
     Dosage: 20 MG, QOD, GD (WHEN SYMPTOMS APPEAR)
     Route: 048
  5. SILODOSIN OD [Concomitant]
     Dosage: 4 MG, BID
     Route: 048
  6. LORAZEPAM. [Concomitant]
     Active Substance: LORAZEPAM
     Dosage: 0.5 MG, PRN
     Route: 048
  7. AVOLVE [Concomitant]
     Active Substance: DUTASTERIDE
     Dosage: 0.5 MG, QD
     Route: 048
  8. TELMISARTAN. [Concomitant]
     Active Substance: TELMISARTAN
     Dosage: 20 MG, QD
     Route: 048
  9. LATUDA [Suspect]
     Active Substance: LURASIDONE HYDROCHLORIDE
     Indication: BIPOLAR DISORDER
     Dosage: 20 MG, QD
     Route: 048
     Dates: start: 20200619, end: 20200710
  10. BROTIZOLAM [Concomitant]
     Active Substance: BROTIZOLAM
     Indication: DEPRESSION
     Dosage: 0.5 MG, QD
     Route: 048
  11. SELENICA?R [Concomitant]
     Active Substance: VALPROATE SODIUM
     Indication: DEPRESSION
     Dosage: 0.125 G, QD
     Route: 048
     Dates: end: 20200626
  12. ZALUTIA [Concomitant]
     Active Substance: TADALAFIL
     Dosage: 5 MG, QD
     Route: 048
  13. GLIBENCLAMIDE [Concomitant]
     Active Substance: GLYBURIDE
     Dosage: 1.25 MG, BID
     Route: 048
  14. FEBURIC [Concomitant]
     Active Substance: FEBUXOSTAT
     Dosage: 10 MG, QD
     Route: 048

REACTIONS (6)
  - Chronic kidney disease [Unknown]
  - Constipation [Recovered/Resolved]
  - Oedema [Recovered/Resolved]
  - Vomiting [Recovered/Resolved]
  - Increased appetite [Recovered/Resolved]
  - Abdominal distension [Recovered/Resolved]

NARRATIVE: CASE EVENT DATE: 202006
